FAERS Safety Report 8988964 (Version 2)
Quarter: 2013Q3

REPORT INFORMATION
  Report Type: Report from Study
  Country: JP (occurrence: JP)
  Receive Date: 20121228
  Receipt Date: 20130705
  Transmission Date: 20140515
  Serious: Yes (Hospitalization)
  Sender: FDA-Public Use
  Company Number: JP-ACTELION-A-CH2012-76898

PATIENT
  Age: 37 Year
  Sex: Female
  Weight: 34.5 kg

DRUGS (12)
  1. TRACLEER [Suspect]
     Indication: PULMONARY HYPERTENSION
     Dosage: 62.5 MG, BID
     Route: 048
     Dates: start: 20100819, end: 20100914
  2. TRACLEER [Suspect]
     Dosage: 125 MG, BID
     Route: 048
     Dates: start: 20100915, end: 20101101
  3. FUROSEMIDE [Concomitant]
  4. CLARITHROMYCIN [Concomitant]
  5. ITRACONAZOLE [Concomitant]
  6. BROTIZOLAM [Concomitant]
  7. FAMOTIDINE [Concomitant]
  8. PREDNISOLONE [Concomitant]
  9. FERROUS SULFATE [Concomitant]
  10. CICLESONIDE [Concomitant]
  11. SALBUTAMOL SULFATE [Concomitant]
  12. OXYGEN [Concomitant]

REACTIONS (2)
  - Headache [Recovering/Resolving]
  - Pneumonia [Recovering/Resolving]
